FAERS Safety Report 16907310 (Version 1)
Quarter: 2019Q4

REPORT INFORMATION
  Report Type: Spontaneous
  Country: BE (occurrence: BE)
  Receive Date: 20191011
  Receipt Date: 20191011
  Transmission Date: 20200122
  Serious: Yes (Other)
  Sender: FDA-Public Use
  Company Number: BE-GLAXOSMITHKLINE-BE2019GSK180535

PATIENT
  Age: 54 Year
  Sex: Female

DRUGS (1)
  1. SUMATRIPTAN. [Suspect]
     Active Substance: SUMATRIPTAN
     Indication: MIGRAINE
     Dosage: UNK
     Route: 048

REACTIONS (4)
  - Maculopathy [Unknown]
  - Visual field defect [Not Recovered/Not Resolved]
  - Vasoconstriction [Unknown]
  - Retinal ischaemia [Unknown]
